FAERS Safety Report 6453851-6 (Version None)
Quarter: 2009Q4

REPORT INFORMATION
  Report Type: 
  Country: None (occurrence: None)
  Receive Date: 20091124
  Receipt Date: 20091115
  Transmission Date: 20100525
  Serious: Yes (Death)
  Sender: FDA-Public Use
  Company Number: FR-ABBOTT-09P-056-0609412-00

PATIENT
  Sex: Male

DRUGS (1)
  1. ENANTONE LP 30 MG PREP INJ [Suspect]
     Indication: PROSTATE CANCER
     Route: 058

REACTIONS (1)
  - PULMONARY EMBOLISM [None]
